FAERS Safety Report 5250697-1 (Version None)
Quarter: 2007Q1

REPORT INFORMATION
  Report Type: 
  Country: None (occurrence: None)
  Receive Date: 20070228
  Receipt Date: 20060621
  Transmission Date: 20070707
  Serious: No
  Sender: FDA-Public Use
  Company Number: US-GLAXOSMITHKLINE-A0609836A

PATIENT
  Age: 60 Year
  Sex: Female

DRUGS (3)
  1. LAMICTAL [Suspect]
     Indication: BIPOLAR II DISORDER
     Dosage: 50MG PER DAY
     Route: 048
  2. HORMONE REPLACEMENT THERAPY [Concomitant]
  3. BENADRYL [Concomitant]

REACTIONS (4)
  - BURNING SENSATION [None]
  - FEELING HOT [None]
  - HOT FLUSH [None]
  - PRURITUS [None]
